FAERS Safety Report 12460787 (Version 2)
Quarter: 2016Q2

REPORT INFORMATION
  Report Type: Report from Study
  Country: DE (occurrence: DE)
  Receive Date: 20160613
  Receipt Date: 20160617
  Transmission Date: 20160815
  Serious: Yes (Life-Threatening, Hospitalization)
  Sender: FDA-Public Use
  Company Number: DE-B.I. PHARMACEUTICALS,INC./RIDGEFIELD-2016-BI-35751BI

PATIENT
  Age: 76 Year
  Sex: Male
  Weight: 98 kg

DRUGS (9)
  1. DABIGATRAN [Suspect]
     Active Substance: DABIGATRAN
     Indication: ATRIAL FIBRILLATION
     Dosage: 150 MG
     Route: 048
     Dates: start: 20150919, end: 20160129
  2. PANTOZOL [Concomitant]
     Active Substance: PANTOPRAZOLE SODIUM
     Indication: PRODUCT USED FOR UNKNOWN INDICATION
     Dosage: 40 MG
     Route: 048
     Dates: start: 20150918
  3. MOXOBETA [Concomitant]
     Indication: HYPERTENSION
     Dosage: 0.2 MG
     Route: 048
     Dates: start: 201508
  4. RAMIPRIL. [Concomitant]
     Active Substance: RAMIPRIL
     Indication: ISCHAEMIC CARDIOMYOPATHY
     Dosage: 5 MG
     Route: 048
     Dates: start: 201508
  5. HYDROCHLOROTHIAZIDE. [Concomitant]
     Active Substance: HYDROCHLOROTHIAZIDE
     Indication: ISCHAEMIC CARDIOMYOPATHY
     Dosage: 25 MG
     Route: 048
     Dates: start: 201508
  6. CLOPIDOGREL [Suspect]
     Active Substance: CLOPIDOGREL BISULFATE
     Indication: CORONARY ARTERY DISEASE
     Dosage: 75 MG
     Route: 048
     Dates: start: 20150919
  7. BISOPROLOL [Concomitant]
     Active Substance: BISOPROLOL
     Indication: ISCHAEMIC CARDIOMYOPATHY
     Dosage: 10 MG
     Route: 048
     Dates: start: 201508
  8. TORASEMID [Concomitant]
     Active Substance: TORSEMIDE
     Indication: ISCHAEMIC CARDIOMYOPATHY
     Dosage: 10 MG
     Route: 048
     Dates: start: 201508
  9. LERCANIDIPIN [Concomitant]
     Active Substance: LERCANIDIPINE
     Indication: HYPERTENSION
     Dosage: 30 MG
     Route: 048
     Dates: start: 201508

REACTIONS (2)
  - Sepsis [Recovered/Resolved with Sequelae]
  - Pneumonia [Recovered/Resolved with Sequelae]

NARRATIVE: CASE EVENT DATE: 20160129
